FAERS Safety Report 5181122-7 (Version None)
Quarter: 2006Q4

REPORT INFORMATION
  Report Type: 
  Country: None (occurrence: None)
  Receive Date: 20061215
  Receipt Date: 20061215
  Transmission Date: 20070319
  Serious: Yes (Hospitalization)
  Sender: FDA-Public Use
  Company Number: None

PATIENT
  Sex: Male
  Weight: 31.7518 kg

DRUGS (15)
  1. RIFAMPIN [Suspect]
     Indication: PERICARDITIS TUBERCULOUS
     Dosage: 600MG DAILY PO
     Route: 048
     Dates: start: 20061202, end: 20061212
  2. AMIODARONE HCL [Concomitant]
  3. ASPIRIN [Concomitant]
  4. ATORVASTATIN CALCIUM [Concomitant]
  5. ETHAMBUTOL HYDROCHLORIDE [Concomitant]
  6. FAMOTIDINE [Concomitant]
  7. FUROSEMIDE [Concomitant]
  8. LORTAB [Concomitant]
  9. NOVOLIN R [Concomitant]
  10. IPRATROPIUM BROMIDE [Concomitant]
  11. IRBESARTAN [Concomitant]
  12. ISONIAZID [Concomitant]
  13. MORPHINE [Concomitant]
  14. PYRAZINAMIDE [Concomitant]
  15. TRAVOPROST [Concomitant]

REACTIONS (1)
  - BLOOD BILIRUBIN INCREASED [None]
